FAERS Safety Report 19102722 (Version 4)
Quarter: 2022Q2

REPORT INFORMATION
  Report Type: Spontaneous
  Country: US (occurrence: US)
  Receive Date: 20210407
  Receipt Date: 20220420
  Transmission Date: 20220721
  Serious: No
  Sender: FDA-Public Use
  Company Number: US-PFIZER INC-2021021117

PATIENT
  Age: 58 Year
  Sex: Female

DRUGS (4)
  1. XELJANZ [Suspect]
     Active Substance: TOFACITINIB CITRATE
     Indication: Rheumatoid arthritis
     Dosage: 5 MG, 1X/DAY
     Route: 048
     Dates: start: 20210101
  2. XELJANZ [Suspect]
     Active Substance: TOFACITINIB CITRATE
     Dosage: 10 MG, 1X/DAY; (XELJANZ 5 MG - 2 TABLET ONCE DAILY AROUND NOON)
     Route: 048
     Dates: start: 20210101
  3. XELJANZ [Suspect]
     Active Substance: TOFACITINIB CITRATE
     Dosage: 5 MG, 1X/DAY
     Route: 048
     Dates: end: 20210331
  4. XELJANZ [Suspect]
     Active Substance: TOFACITINIB CITRATE
     Dosage: 5 MG, 2X/DAY
     Route: 048
     Dates: start: 20210101, end: 2021

REACTIONS (12)
  - Insomnia [Unknown]
  - Pain of skin [Unknown]
  - Abdominal distension [Unknown]
  - Depressed mood [Unknown]
  - Memory impairment [Unknown]
  - Pain in extremity [Unknown]
  - Vertigo [Unknown]
  - Dizziness [Unknown]
  - Fall [Unknown]
  - Product dose omission in error [Unknown]
  - Intentional product misuse [Unknown]
  - Therapeutic product effect incomplete [Unknown]
